FAERS Safety Report 5791640-6 (Version None)
Quarter: 2008Q2

REPORT INFORMATION
  Report Type: 
  Country: None (occurrence: None)
  Receive Date: 20080626
  Receipt Date: 20080307
  Transmission Date: 20081010
  Serious: No
  Sender: FDA-Public Use
  Company Number: A0713971A

PATIENT
  Age: 44 Year
  Sex: Female

DRUGS (6)
  1. ALLI [Suspect]
     Route: 048
     Dates: start: 20080206
  2. COUMADIN [Concomitant]
  3. OMEGA 3 FATTY ACID [Concomitant]
  4. MAGNESIUM [Concomitant]
  5. CODEINE [Concomitant]
  6. MULTI-VITAMIN [Concomitant]

REACTIONS (1)
  - CONSTIPATION [None]
